FAERS Safety Report 7570217-6 (Version None)
Quarter: 2011Q2

REPORT INFORMATION
  Report Type: 
  Country: None (occurrence: None)
  Receive Date: 20110620
  Receipt Date: 20110609
  Transmission Date: 20111010
  Serious: Yes (Other)
  Sender: FDA-Public Use
  Company Number: 1000021530

PATIENT
  Age: 48 Year
  Sex: Female
  Weight: 56 kg

DRUGS (4)
  1. CITALOPRAM HYDROBROMIDE [Suspect]
     Indication: ANXIETY
     Dosage: 40 MG (40 MG, 1 IN 1 D, AT MORNING), ORAL
     Route: 048
     Dates: start: 20100201, end: 20110401
  2. CITALOPRAM HYDROBROMIDE [Suspect]
     Indication: DEPRESSION
     Dosage: 40 MG (40 MG, 1 IN 1 D, AT MORNING), ORAL
     Route: 048
     Dates: start: 20100201, end: 20110401
  3. PROTONIX [Suspect]
     Indication: GASTROOESOPHAGEAL REFLUX DISEASE
     Dosage: 40 MG (40 MG, 1 IN 1 D), ORAL
     Route: 048
     Dates: start: 20000101
  4. ATENOLOL [Concomitant]

REACTIONS (1)
  - BREAST CANCER FEMALE [None]
